FAERS Safety Report 19493270 (Version 2)
Quarter: 2021Q3

REPORT INFORMATION
  Report Type: Spontaneous
  Country: US (occurrence: US)
  Receive Date: 20210705
  Receipt Date: 20210823
  Transmission Date: 20211014
  Serious: No
  Sender: FDA-Public Use
  Company Number: US-PFIZER INC-2021693578

PATIENT
  Age: 85 Year
  Sex: Female

DRUGS (2)
  1. PREMPRO [Suspect]
     Active Substance: ESTROGENS, CONJUGATED\MEDROXYPROGESTERONE ACETATE
     Dosage: 1 DF, 1X/DAY
     Route: 048
  2. TOZINAMERAN. [Concomitant]
     Active Substance: TOZINAMERAN
     Dosage: FIRST DOSE; RECEIVED BOTH DOSES (SECOND DOSE DATE WAS NOT PROVIDED)
     Dates: start: 202104, end: 202104

REACTIONS (1)
  - Hot flush [Unknown]
